FAERS Safety Report 15440745 (Version 2)
Quarter: 2018Q4

REPORT INFORMATION
  Report Type: Report from Study
  Country: DE (occurrence: DE)
  Receive Date: 20180928
  Receipt Date: 20181122
  Transmission Date: 20190204
  Serious: Yes (Life-Threatening, Hospitalization)
  Sender: FDA-Public Use
  Company Number: DE-BAXTER-2018BAX024224

PATIENT
  Age: 41 Year
  Sex: Male
  Weight: 89 kg

DRUGS (28)
  1. MOVENTIG [Concomitant]
     Active Substance: NALOXEGOL OXALATE
     Indication: PRODUCT USED FOR UNKNOWN INDICATION
     Dosage: DOSAGE FORM: UNSPECIFIED
     Route: 065
     Dates: start: 20180419
  2. HYDROMORPHON AL [Concomitant]
     Active Substance: HYDROMORPHONE HYDROCHLORIDE
     Indication: PRODUCT USED FOR UNKNOWN INDICATION
     Dosage: DOSAGE FORM: UNSPECIFIED
     Route: 065
     Dates: start: 20180417
  3. NATRIUMPICOSULFAT [Concomitant]
     Indication: PRODUCT USED FOR UNKNOWN INDICATION
     Dosage: DOSAGE FORM: UNSPECIFIED
     Route: 065
     Dates: start: 20180417
  4. UROMITEXAN 400 MG [Suspect]
     Active Substance: MESNA
     Dosage: ON DAY 1, 2 AND 3
     Route: 042
     Dates: start: 20180417, end: 2018
  5. HOLOXAN [Suspect]
     Active Substance: IFOSFAMIDE
     Indication: SARCOMA METASTATIC
     Dosage: ON DAY 1, 2 AND 3
     Route: 042
     Dates: start: 20180417
  6. NOVALGIN (METAMIZOLE SODIUM) [Concomitant]
     Active Substance: METAMIZOLE SODIUM
     Indication: PRODUCT USED FOR UNKNOWN INDICATION
     Dosage: DOSAGE FORM: UNSPECIFIED
     Route: 065
  7. DEXAMETHASONE. [Concomitant]
     Active Substance: DEXAMETHASONE
     Indication: PRODUCT USED FOR UNKNOWN INDICATION
     Dosage: DOSAGE FORM: UNSPECIFIED
     Route: 065
     Dates: start: 20180417
  8. SERTRALINE [Concomitant]
     Active Substance: SERTRALINE HYDROCHLORIDE
     Indication: PRODUCT USED FOR UNKNOWN INDICATION
     Dosage: DOSAGE FORM: UNSPECIFIED
     Route: 065
     Dates: start: 20180511
  9. VOMEX A [Concomitant]
     Active Substance: DIMENHYDRINATE
     Indication: PRODUCT USED FOR UNKNOWN INDICATION
     Dosage: DOSAGE FORM: UNSPECIFIED
     Route: 065
     Dates: start: 20180511
  10. DOXORUBICI N [Suspect]
     Active Substance: DOXORUBICIN
     Indication: SARCOMA METASTATIC
     Dosage: ON DAY 1, 2 AND 3
     Route: 042
     Dates: start: 20180417
  11. ONDANSETRON [Concomitant]
     Active Substance: ONDANSETRON
     Indication: PRODUCT USED FOR UNKNOWN INDICATION
     Dosage: DOSAGE FORM: UNSPECIFIED
     Route: 065
     Dates: start: 20180417
  12. METOCLOPRAMIDE. [Concomitant]
     Active Substance: METOCLOPRAMIDE
     Indication: PRODUCT USED FOR UNKNOWN INDICATION
     Dosage: DOSAGE FORM: UNSPECIFIED
     Route: 065
     Dates: start: 20180417
  13. MACROGOL [Concomitant]
     Active Substance: POLYETHYLENE GLYCOLS
     Indication: PRODUCT USED FOR UNKNOWN INDICATION
     Dosage: DOSAGE FORM: UNSPECIFIED
     Route: 065
     Dates: start: 20180417
  14. BISACODYL. [Concomitant]
     Active Substance: BISACODYL
     Indication: PRODUCT USED FOR UNKNOWN INDICATION
     Dosage: DOSAGE FORM: UNSPECIFIED
     Route: 065
  15. ZOMETA [Concomitant]
     Active Substance: ZOLEDRONIC ACID
     Indication: PRODUCT USED FOR UNKNOWN INDICATION
     Dosage: DOSAGE FORM: UNSPECIFIED
     Route: 065
     Dates: start: 201801
  16. OLARATUMAB [Suspect]
     Active Substance: OLARATUMAB
     Indication: SARCOMA METASTATIC
     Dosage: ON DAY 1 AND 8
     Route: 042
     Dates: start: 20180515
  17. ALIZAPRIDE [Concomitant]
     Active Substance: ALIZAPRIDE
     Indication: PRODUCT USED FOR UNKNOWN INDICATION
     Dosage: DOSAGE FORM: UNSPECIFIED
     Route: 065
     Dates: start: 20180417
  18. PIRACETAM [Concomitant]
     Active Substance: PIRACETAM
     Indication: PRODUCT USED FOR UNKNOWN INDICATION
     Dosage: DOSAGE FORM: UNSPECIFIED
     Route: 065
     Dates: start: 20180417
  19. AMPHO-MORONAL [Concomitant]
     Active Substance: AMPHOTERICIN B
     Indication: PRODUCT USED FOR UNKNOWN INDICATION
     Dosage: DOSAGE FORM: UNSPECIFIED
     Route: 065
     Dates: start: 20180417
  20. DEXRAZOXANE. [Concomitant]
     Active Substance: DEXRAZOXANE
     Indication: PRODUCT USED FOR UNKNOWN INDICATION
     Dosage: DOSAGE FORM: UNSPECIFIED
     Route: 065
     Dates: start: 20180417
  21. OLARATUMAB [Suspect]
     Active Substance: OLARATUMAB
     Dosage: ON DAY 1 AND 8
     Route: 042
     Dates: start: 20180417, end: 2018
  22. FUROSEMIDE. [Concomitant]
     Active Substance: FUROSEMIDE
     Indication: PRODUCT USED FOR UNKNOWN INDICATION
     Dosage: DOSAGE FORM: UNSPECIFIED
     Route: 065
     Dates: start: 20180417
  23. NEUPOGEN [Concomitant]
     Active Substance: FILGRASTIM
     Indication: PRODUCT USED FOR UNKNOWN INDICATION
     Dosage: DOSAGE FORM: UNSPECIFIED
     Route: 065
     Dates: start: 20180417
  24. CLEMASTINE [Concomitant]
     Active Substance: CLEMASTINE
     Indication: PRODUCT USED FOR UNKNOWN INDICATION
     Dosage: DOSAGE FORM: UNSPECIFIED
     Route: 065
     Dates: start: 20180417
  25. UROMITEXAN 400 MG [Suspect]
     Active Substance: MESNA
     Indication: SARCOMA METASTATIC
     Dosage: ON DAY 1, 2 AND 3
     Route: 042
     Dates: start: 20180508
  26. PANTOPRAZOL [Concomitant]
     Active Substance: PANTOPRAZOLE SODIUM
     Indication: PRODUCT USED FOR UNKNOWN INDICATION
     Dosage: DOSAGE FORM: UNSPECIFIED
     Route: 065
     Dates: start: 20180417
  27. OLANZAPINE. [Concomitant]
     Active Substance: OLANZAPINE
     Indication: PRODUCT USED FOR UNKNOWN INDICATION
     Dosage: DOSAGE FORM: UNSPECIFIED
     Route: 065
     Dates: start: 20180515
  28. IDEOS [Concomitant]
     Active Substance: CALCIUM CARBONATE\CHOLECALCIFEROL
     Indication: PRODUCT USED FOR UNKNOWN INDICATION
     Dosage: DOSAGE FORM: UNSPECIFIED
     Route: 065
     Dates: start: 20180418

REACTIONS (2)
  - Febrile neutropenia [Recovered/Resolved]
  - Groin abscess [Unknown]

NARRATIVE: CASE EVENT DATE: 20180628
